FAERS Safety Report 6195869-7 (Version None)
Quarter: 2009Q2

REPORT INFORMATION
  Report Type: 
  Country: None (occurrence: None)
  Receive Date: 20090520
  Receipt Date: 20071130
  Transmission Date: 20091009
  Serious: Yes (Hospitalization, Other)
  Sender: FDA-Public Use
  Company Number: US-ASTRAZENECA-2007UW12794

PATIENT
  Age: 20471 Day
  Sex: Female
  Weight: 111.1 kg

DRUGS (20)
  1. SEROQUEL [Suspect]
     Indication: DEPRESSION
     Route: 048
     Dates: start: 20021121, end: 20030911
  2. SEROQUEL [Suspect]
     Route: 048
     Dates: start: 20040122
  3. RISPERDAL [Suspect]
     Dates: start: 20021021, end: 20040101
  4. GLUCOPHAGE [Concomitant]
     Route: 048
  5. SYNTHROID [Concomitant]
     Route: 048
  6. VERAPAMIL [Concomitant]
     Route: 065
  7. PHENERGAN [Concomitant]
     Route: 048
  8. LISINOPRIL [Concomitant]
     Route: 048
  9. LEXAPRO [Concomitant]
     Route: 065
  10. NEURONTIN [Concomitant]
     Route: 048
  11. ESTRACE [Concomitant]
     Route: 048
  12. PERCOCET [Concomitant]
     Route: 065
  13. INSULIN [Concomitant]
     Dosage: 5,6,10,18 UNITS
     Route: 065
  14. NEXIUM [Concomitant]
     Route: 048
  15. ALDACTAZIDE [Concomitant]
     Route: 048
  16. PLETAL [Concomitant]
     Route: 048
  17. METOPROLOL [Concomitant]
     Route: 048
  18. ASPIRIN [Concomitant]
     Route: 048
  19. KAY CIEL DURA-TABS [Concomitant]
     Route: 048
  20. FUROSEMIDE [Concomitant]
     Route: 048

REACTIONS (20)
  - ABDOMINAL PAIN [None]
  - BLOODY DISCHARGE [None]
  - CARDIAC FAILURE CONGESTIVE [None]
  - DIABETES MELLITUS [None]
  - EAR PAIN [None]
  - FACIAL PAIN [None]
  - MELAENA [None]
  - MUSCULOSKELETAL PAIN [None]
  - NAUSEA [None]
  - ORAL CANDIDIASIS [None]
  - OSTEOMYELITIS [None]
  - PANCREATITIS [None]
  - PANCREATITIS ACUTE [None]
  - PANCREATITIS RELAPSING [None]
  - PERIPHERAL ISCHAEMIA [None]
  - PNEUMONIA [None]
  - RENAL FAILURE CHRONIC [None]
  - UPPER RESPIRATORY TRACT INFECTION [None]
  - VERTIGO [None]
  - VOMITING [None]
